FAERS Safety Report 5470102-X (Version None)
Quarter: 2007Q3

REPORT INFORMATION
  Report Type: 
  Country: None (occurrence: None)
  Receive Date: 20070927
  Receipt Date: 20060928
  Transmission Date: 20080115
  Serious: No
  Sender: FDA-Public Use
  Company Number: US-AMGEN-US195819

PATIENT
  Sex: Female

DRUGS (6)
  1. NEUPOGEN [Suspect]
     Indication: NEUTROPENIA
     Route: 058
  2. NEUPOGEN [Suspect]
  3. NEUPOGEN [Suspect]
  4. NEUPOGEN [Suspect]
  5. PEGASYS [Concomitant]
     Route: 058
     Dates: start: 20060612
  6. RIBAVIRIN [Concomitant]
     Route: 048
     Dates: start: 20060612

REACTIONS (3)
  - ALOPECIA [None]
  - BONE PAIN [None]
  - INJECTION SITE PAIN [None]
